FAERS Safety Report 4942973-4 (Version None)
Quarter: 2006Q1

REPORT INFORMATION
  Report Type: 
  Country: None (occurrence: None)
  Receive Date: 20060314
  Receipt Date: 20060217
  Transmission Date: 20060701
  Serious: Yes (Other)
  Sender: FDA-Public Use
  Company Number: US-GLAXOSMITHKLINE-A0594154A

PATIENT
  Age: 40 Year
  Sex: Female

DRUGS (6)
  1. VALTREX [Suspect]
     Indication: HERPES SIMPLEX
     Dosage: 1G TWICE PER DAY
     Route: 048
     Dates: start: 20060215, end: 20060216
  2. ACYCLOVIR SODIUM [Concomitant]
     Route: 061
     Dates: start: 20060215, end: 20060216
  3. FLONASE [Concomitant]
  4. SEREVENT [Concomitant]
  5. RITALIN [Concomitant]
  6. ZOLOFT [Concomitant]

REACTIONS (10)
  - ANGIONEUROTIC OEDEMA [None]
  - ARTHROPATHY [None]
  - ASTHENIA [None]
  - HEADACHE [None]
  - MALAISE [None]
  - OEDEMA PERIPHERAL [None]
  - PAIN [None]
  - RASH PRURITIC [None]
  - SWELLING FACE [None]
  - URTICARIA [None]
